FAERS Safety Report 15997970 (Version 1)
Quarter: 2019Q1

REPORT INFORMATION
  Report Type: Spontaneous
  Country: US (occurrence: US)
  Receive Date: 20190222
  Receipt Date: 20190222
  Transmission Date: 20190418
  Serious: Yes (Other)
  Sender: FDA-Public Use
  Company Number: US-009507513-1902USA006118

PATIENT
  Sex: Male
  Weight: 68.95 kg

DRUGS (5)
  1. OMEPRAZOLE. [Suspect]
     Active Substance: OMEPRAZOLE
     Indication: GASTROOESOPHAGEAL REFLUX DISEASE
     Dosage: 1 CAPSULE (40 MG) TAKEN EVERY NIGHT
     Route: 048
     Dates: start: 2017
  2. JANUMET [Suspect]
     Active Substance: METFORMIN HYDROCHLORIDE\SITAGLIPTIN PHOSPHATE
     Indication: TYPE 2 DIABETES MELLITUS
     Dosage: 50/1000MG TABLET TWICE DAILY (ONE IN THE MORNING AND ONE AT NIGHT)
     Route: 048
     Dates: start: 2017
  3. ROSUVASTATIN. [Suspect]
     Active Substance: ROSUVASTATIN
     Indication: BLOOD CHOLESTEROL INCREASED
     Dosage: 1 TABLET (20 MG) TAKEN EVERY NIGHT
     Route: 048
     Dates: start: 2016
  4. GLIPIZIDE. [Suspect]
     Active Substance: GLIPIZIDE
     Indication: TYPE 2 DIABETES MELLITUS
     Dosage: 1 TABLET (5MG), TAKEN TWICE DAILY
     Route: 048
     Dates: start: 201806
  5. GABAPENTIN. [Suspect]
     Active Substance: GABAPENTIN
     Indication: MUSCLE SPASMS
     Dosage: PRESCRIBED 3 CAPSULES (300 MG) DAILY, TAKEN PROBABLY 2 CAPSULES DAILY
     Route: 048
     Dates: start: 20180130, end: 2018

REACTIONS (8)
  - Neuralgia [Recovering/Resolving]
  - Intervertebral disc protrusion [Not Recovered/Not Resolved]
  - Muscle spasms [Recovered/Resolved]
  - Hypoaesthesia [Unknown]
  - Neck pain [Not Recovered/Not Resolved]
  - Headache [Not Recovered/Not Resolved]
  - Rheumatoid arthritis [Unknown]
  - Musculoskeletal discomfort [Not Recovered/Not Resolved]

NARRATIVE: CASE EVENT DATE: 2018
